FAERS Safety Report 12631100 (Version 2)
Quarter: 2016Q3

REPORT INFORMATION
  Report Type: Spontaneous
  Country: US (occurrence: US)
  Receive Date: 20160808
  Receipt Date: 20160808
  Transmission Date: 20161109
  Serious: No
  Sender: FDA-Public Use
  Company Number: US-BEH-2015052276

PATIENT
  Sex: Female
  Weight: 83 kg

DRUGS (17)
  1. EPIPEN [Concomitant]
     Active Substance: EPINEPHRINE
     Indication: ANAPHYLACTIC REACTION
  2. PREVACID [Concomitant]
     Active Substance: LANSOPRAZOLE
  3. DIPHENHYDRAMINE. [Concomitant]
     Active Substance: DIPHENHYDRAMINE
  4. IPRATROPIUM [Concomitant]
     Active Substance: IPRATROPIUM
  5. ALOCRIL [Concomitant]
     Active Substance: NEDOCROMIL SODIUM
  6. NASONEX [Concomitant]
     Active Substance: MOMETASONE FUROATE
  7. ALBUTEROL. [Concomitant]
     Active Substance: ALBUTEROL
  8. LISINOPRIL. [Concomitant]
     Active Substance: LISINOPRIL
  9. BUDESONIDE. [Concomitant]
     Active Substance: BUDESONIDE
  10. EFFEXOR [Concomitant]
     Active Substance: VENLAFAXINE HYDROCHLORIDE
  11. FLORASTOR [Concomitant]
     Active Substance: SACCHAROMYCES CEREVISIAE
  12. ADVAIR HFA [Concomitant]
     Active Substance: FLUTICASONE PROPIONATE\SALMETEROL XINAFOATE
  13. LMX [Concomitant]
     Active Substance: LIDOCAINE
  14. ARMOUR THYROID [Concomitant]
     Active Substance: THYROID, PORCINE
  15. HIZENTRA [Suspect]
     Active Substance: HUMAN IMMUNOGLOBULIN G
     Indication: IMMUNODEFICIENCY COMMON VARIABLE
     Dosage: 10 GM 50 ML
     Route: 058
  16. ACETAMINOPHEN. [Concomitant]
     Active Substance: ACETAMINOPHEN
  17. SINGULAIR [Concomitant]
     Active Substance: MONTELUKAST SODIUM

REACTIONS (1)
  - Seasonal allergy [Unknown]
